FAERS Safety Report 7819671-2 (Version None)
Quarter: 2011Q4

REPORT INFORMATION
  Report Type: 
  Country: None (occurrence: None)
  Receive Date: 20111018
  Receipt Date: 20111012
  Transmission Date: 20120403
  Serious: Yes (Death, Life-Threatening, Hospitalization)
  Sender: FDA-Public Use
  Company Number: JP-PFIZER INC-2011200067

PATIENT
  Age: 66 Year
  Sex: Female

DRUGS (15)
  1. CYTOTEC [Suspect]
     Dosage: 200 MG, 1X/DAY
     Dates: start: 20110824, end: 20110824
  2. MOBIC [Suspect]
     Indication: PYREXIA
     Dosage: 10 MG, 1X/DAY
     Route: 048
     Dates: start: 20110813, end: 20110821
  3. PROCHLORPERAZINE [Suspect]
     Indication: VOMITING
     Dosage: 5 MG, 2X/DAY
     Route: 048
     Dates: start: 20110809, end: 20110812
  4. PROCHLORPERAZINE [Suspect]
     Dosage: 5 MG, 2X/DAY
     Dates: start: 20110815, end: 20110824
  5. MAGMITT [Concomitant]
     Indication: CONSTIPATION
     Dosage: 330 MG, 3X/DAY
     Route: 048
     Dates: start: 20100510, end: 20110824
  6. NAPROXEN [Suspect]
     Indication: PAIN
     Dosage: 100 MG, 2X/DAY
     Route: 048
     Dates: start: 20110822, end: 20110823
  7. SUTENT [Suspect]
     Indication: RENAL CELL CARCINOMA
     Dosage: 50 MG, 1X/DAY
     Route: 048
     Dates: start: 20110808, end: 20110822
  8. FENTANYL CITRATE [Suspect]
     Indication: CANCER PAIN
     Dosage: 1 DF, UNK
     Route: 062
     Dates: start: 20110822, end: 20110824
  9. OXYCONTIN [Concomitant]
     Indication: CANCER PAIN
     Dosage: 5 MG, 2X/DAY
     Route: 048
     Dates: start: 20110809, end: 20110809
  10. SENNA-MINT WAF [Concomitant]
     Indication: CONSTIPATION
     Dosage: 12 MG, 1X/DAY
     Route: 048
     Dates: start: 20100517, end: 20110824
  11. MOBIC [Suspect]
     Indication: PAIN
     Dosage: 10 MG, 1X/DAY
     Dates: start: 20110824, end: 20110824
  12. CEFOTIAM HYDROCHLORIDE [Suspect]
     Indication: SEPSIS
     Dosage: 1 G, 2X/DAY
     Route: 042
     Dates: start: 20110819, end: 20110822
  13. LOXONIN [Concomitant]
     Indication: PAIN
  14. CYTOTEC [Suspect]
     Indication: GASTRITIS
     Dosage: 200 MG, 1X/DAY
     Route: 048
     Dates: start: 20110721, end: 20110821
  15. LOXONIN [Concomitant]
     Indication: PYREXIA
     Dosage: 60 MG, 2X/DAY
     Route: 048
     Dates: start: 20100517, end: 20110824

REACTIONS (3)
  - TOXIC EPIDERMAL NECROLYSIS [None]
  - STAPHYLOCOCCAL SEPSIS [None]
  - PANCYTOPENIA [None]
